FAERS Safety Report 4835353-3 (Version None)
Quarter: 2005Q4

REPORT INFORMATION
  Report Type: 
  Country: None (occurrence: None)
  Receive Date: 20051114
  Receipt Date: 20050929
  Transmission Date: 20060501
  Serious: Yes (Other)
  Sender: FDA-Public Use
  Company Number: 200508568

PATIENT
  Sex: Female
  Weight: 64.8644 kg

DRUGS (2)
  1. TAZORAC [Suspect]
     Indication: ACNE
     Route: 061
  2. SYNTHROID [Concomitant]

REACTIONS (2)
  - ABORTION SPONTANEOUS [None]
  - DRUG EXPOSURE BEFORE PREGNANCY [None]
